FAERS Safety Report 4608936-3 (Version None)
Quarter: 2005Q1

REPORT INFORMATION
  Report Type: 
  Country: None (occurrence: None)
  Receive Date: 20050311
  Receipt Date: 20050228
  Transmission Date: 20050727
  Serious: Yes (Hospitalization)
  Sender: FDA-Public Use
  Company Number: HQWYE738401MAR05

PATIENT
  Age: 22 Year
  Sex: Male

DRUGS (3)
  1. RAPAMUNE [Suspect]
     Indication: PROPHYLAXIS AGAINST TRANSPLANT REJECTION
     Dosage: 1 MG 1X PER 1 DAY
     Route: 048
     Dates: start: 20041023
  2. MYCOPHENOLATE MOFETIL [Concomitant]
  3. CORTICOSTEROID NOS (CORTICOSTEROID NOS) [Concomitant]

REACTIONS (3)
  - AGRANULOCYTOSIS [None]
  - INFLUENZA LIKE ILLNESS [None]
  - PYREXIA [None]
